FAERS Safety Report 12247020 (Version 1)
Quarter: 2016Q2

REPORT INFORMATION
  Report Type: Report from Study
  Country: PL (occurrence: PL)
  Receive Date: 20160407
  Receipt Date: 20160407
  Transmission Date: 20160815
  Serious: No
  Sender: FDA-Public Use
  Company Number: PHHY2016PL042742

PATIENT
  Age: 49 Year
  Sex: Female

DRUGS (1)
  1. TASIGNA [Suspect]
     Active Substance: NILOTINIB
     Indication: PRODUCT USED FOR UNKNOWN INDICATION
     Dosage: 400 MG, BID
     Route: 048
     Dates: start: 201312

REACTIONS (23)
  - Peripheral swelling [Unknown]
  - Tremor [Unknown]
  - Eye colour change [Unknown]
  - Vomiting [Unknown]
  - Dry skin [Unknown]
  - Palpitations [Unknown]
  - Inappropriate schedule of drug administration [Unknown]
  - Onychoclasis [Unknown]
  - Abdominal pain upper [Unknown]
  - Dyspnoea [Unknown]
  - Hyperhidrosis [Unknown]
  - Swelling face [Unknown]
  - Insomnia [Unknown]
  - Heart rate increased [Unknown]
  - Nausea [Unknown]
  - Constipation [Unknown]
  - Fatigue [Unknown]
  - Alopecia [Unknown]
  - Eczema [Unknown]
  - Asthenia [Unknown]
  - Hepatic pain [Unknown]
  - Dysgeusia [Unknown]
  - Contusion [Unknown]
